FAERS Safety Report 5159512-8 (Version None)
Quarter: 2006Q4

REPORT INFORMATION
  Report Type: 
  Country: None (occurrence: None)
  Receive Date: 20061117
  Receipt Date: 20060816
  Transmission Date: 20070319
  Serious: Yes (Hospitalization, Disabling, Other)
  Sender: FDA-Public Use
  Company Number: 2006058784

PATIENT
  Age: 72 Year
  Sex: Female
  Weight: 63.5036 kg

DRUGS (1)
  1. CELEBREX [Suspect]
     Indication: ARTHRITIS
     Dosage: 200 MG (100 MG, 2 IN 1 D), ORAL
     Dates: start: 19980101

REACTIONS (10)
  - AMNESIA [None]
  - CEREBRAL HAEMORRHAGE [None]
  - CEREBROVASCULAR ACCIDENT [None]
  - CONVULSION [None]
  - GAIT DISTURBANCE [None]
  - HEMIPLEGIA [None]
  - INSOMNIA [None]
  - PAIN IN EXTREMITY [None]
  - SPEECH DISORDER [None]
  - WHEELCHAIR USER [None]
